FAERS Safety Report 24366469 (Version 3)
Quarter: 2024Q4

REPORT INFORMATION
  Report Type: Spontaneous
  Country: AT (occurrence: AT)
  Receive Date: 20240926
  Receipt Date: 20241124
  Transmission Date: 20250115
  Serious: Yes (Other)
  Sender: CSL BEHRING
  Company Number: AT-BEH-2024179047

PATIENT
  Age: 40 Year
  Sex: Male

DRUGS (3)
  1. HIZENTRA [Suspect]
     Active Substance: HUMAN IMMUNOGLOBULIN G
     Indication: Immunodeficiency
     Dosage: UNK, QD
     Route: 058
     Dates: start: 202006
  2. HIZENTRA [Suspect]
     Active Substance: HUMAN IMMUNOGLOBULIN G
     Indication: Neuroendocrine tumour
     Dosage: UNK, QD
     Route: 058
  3. HIZENTRA [Suspect]
     Active Substance: HUMAN IMMUNOGLOBULIN G
     Dosage: UNK, QD
     Route: 058

REACTIONS (16)
  - Drug ineffective [Unknown]
  - Gastrointestinal haemorrhage [Unknown]
  - Neuroendocrine tumour [Unknown]
  - Petechiae [Unknown]
  - Emotional distress [Unknown]
  - Product storage error [Unknown]
  - Lymphocyte count decreased [Unknown]
  - Liquid product physical issue [Unknown]
  - Diarrhoea [Unknown]
  - Hypoglycaemia [Unknown]
  - Infection susceptibility increased [Recovering/Resolving]
  - Gastrointestinal disorder [Recovering/Resolving]
  - Skin disorder [Recovering/Resolving]
  - Hypoglycaemia [Unknown]
  - Cryptosporidiosis infection [Unknown]
  - Gastrointestinal infection [Unknown]

NARRATIVE: CASE EVENT DATE: 20220101
